FAERS Safety Report 7048244-7 (Version None)
Quarter: 2010Q4

REPORT INFORMATION
  Report Type: 
  Country: None (occurrence: None)
  Receive Date: 20101015
  Receipt Date: 20101006
  Transmission Date: 20110411
  Serious: Yes (Hospitalization)
  Sender: FDA-Public Use
  Company Number: JP-ABBOTT-10P-087-0676538-00

PATIENT
  Sex: Male

DRUGS (14)
  1. HUMIRA [Suspect]
     Indication: COLITIS ULCERATIVE
     Route: 058
     Dates: start: 20090610
  2. PENTASA [Concomitant]
     Indication: COLITIS ULCERATIVE
     Route: 048
     Dates: start: 20080723, end: 20090325
  3. PENTASA [Concomitant]
     Route: 048
     Dates: start: 20090325
  4. LAC B [Concomitant]
     Indication: COLITIS ULCERATIVE
     Route: 048
     Dates: start: 20070726
  5. PREDNISOLONE [Concomitant]
     Indication: COLITIS ULCERATIVE
     Dosage: DOSE TITRATION
     Route: 048
     Dates: start: 20091029, end: 20100203
  6. PREDNISOLONE [Concomitant]
     Route: 048
     Dates: start: 20100929
  7. GASTER D [Concomitant]
     Indication: GASTRITIS
     Route: 048
     Dates: start: 20070808
  8. MUCOSTA [Concomitant]
     Indication: GASTRITIS
     Route: 048
     Dates: start: 20090513
  9. LOXONIN [Concomitant]
     Indication: HEADACHE
     Route: 048
  10. SPEEL PLASTER [Concomitant]
     Indication: SKIN PAPILLOMA
     Dosage: ADEQUATE DOSE
     Route: 061
     Dates: start: 20090930, end: 20100302
  11. PERIACTIN [Concomitant]
     Indication: COUGH
     Route: 048
     Dates: start: 20101001, end: 20101005
  12. NICHICODE [Concomitant]
     Indication: COUGH
     Route: 048
     Dates: start: 20101001, end: 20101005
  13. MUCODYNE [Concomitant]
     Indication: COUGH
     Dates: start: 20101001, end: 20101005
  14. ALDIOXA [Concomitant]
     Indication: COUGH
     Route: 048
     Dates: start: 20101001, end: 20101005

REACTIONS (1)
  - PYREXIA [None]
